FAERS Safety Report 16155433 (Version 2)
Quarter: 2019Q2

REPORT INFORMATION
  Report Type: Report from Study
  Country: ES (occurrence: ES)
  Receive Date: 20190403
  Receipt Date: 20190415
  Transmission Date: 20190711
  Serious: Yes (Hospitalization, Other)
  Sender: FDA-Public Use
  Company Number: ES-BRISTOL-MYERS SQUIBB COMPANY-BMS-2019-025118

PATIENT
  Age: 7 Year
  Sex: Female
  Weight: 26.4 kg

DRUGS (6)
  1. DEXAMETASONA                       /00016001/ [Concomitant]
     Active Substance: DEXAMETHASONE
     Indication: PRODUCT USED FOR UNKNOWN INDICATION
     Dosage: 0.25 MILLIGRAM
     Route: 065
     Dates: start: 20190130
  2. PARACETAMOL [Concomitant]
     Active Substance: ACETAMINOPHEN
     Indication: PRODUCT USED FOR UNKNOWN INDICATION
     Dosage: 14 MILLILITER
     Route: 065
     Dates: start: 20190120
  3. OMEPRAZOLE. [Concomitant]
     Active Substance: OMEPRAZOLE
     Indication: PRODUCT USED FOR UNKNOWN INDICATION
     Dosage: 200 MILLIGRAM
     Route: 065
     Dates: start: 20190309
  4. NIVOLUMAB [Suspect]
     Active Substance: NIVOLUMAB
     Indication: BRAIN STEM GLIOMA
     Dosage: 72 MILLIGRAM, Q3WK
     Route: 042
     Dates: start: 20181227
  5. IPILIMUMAB [Suspect]
     Active Substance: IPILIMUMAB
     Indication: BRAIN STEM GLIOMA
     Dosage: 24 MILLIGRAM, Q3WK
     Route: 042
     Dates: start: 20181227
  6. SEPTRIN [Concomitant]
     Active Substance: SULFAMETHOXAZOLE\TRIMETHOPRIM
     Indication: PRODUCT USED FOR UNKNOWN INDICATION
     Dosage: 10 MILLILITER
     Route: 065
     Dates: start: 2018

REACTIONS (1)
  - Tumour flare [Recovered/Resolved]

NARRATIVE: CASE EVENT DATE: 20190309
